FAERS Safety Report 12945105 (Version 2)
Quarter: 2017Q1

REPORT INFORMATION
  Report Type: Report from Study
  Country: US (occurrence: US)
  Receive Date: 20161115
  Receipt Date: 20170119
  Transmission Date: 20170428
  Serious: Yes (Other)
  Sender: FDA-Public Use
  Company Number: US-MALLINCKRODT-T201605688

PATIENT
  Age: 74 Year
  Sex: Female

DRUGS (2)
  1. REPOSITORY CORTICOTROPIN INJECTION [Suspect]
     Active Substance: CORTICOTROPIN
     Indication: PROTEINURIA
     Dosage: 80U/ML, TWICE WEEKLY (SUN + THUR)
     Route: 058
     Dates: start: 20160623
  2. REPOSITORY CORTICOTROPIN INJECTION [Suspect]
     Active Substance: CORTICOTROPIN
     Indication: NEPHROTIC SYNDROME
     Dosage: 80 UNTIS TWICE WEEKLY (SUNDAY AND THURSDAY)
     Route: 058

REACTIONS (4)
  - Cataract [Not Recovered/Not Resolved]
  - Injection site pain [Not Recovered/Not Resolved]
  - Blindness [Not Recovered/Not Resolved]
  - Protein total abnormal [Unknown]

NARRATIVE: CASE EVENT DATE: 20160623
